FAERS Safety Report 5983535-X (Version None)
Quarter: 2008Q4

REPORT INFORMATION
  Report Type: 
  Country: None (occurrence: None)
  Receive Date: 20081208
  Receipt Date: 20081126
  Transmission Date: 20090506
  Serious: Yes (Other)
  Sender: FDA-Public Use
  Company Number: US-ROCHE-599383

PATIENT
  Age: 55 Year
  Sex: Female

DRUGS (6)
  1. TAMIFLU [Suspect]
     Dosage: OTHER: PILL
     Route: 065
  2. PHENOBARBITAL TAB [Concomitant]
  3. DILANTIN [Concomitant]
  4. VALPROIC ACID [Concomitant]
  5. KEPPRA [Concomitant]
  6. LAMICTAL [Concomitant]

REACTIONS (1)
  - CONVULSION [None]
